FAERS Safety Report 17934984 (Version 1)
Quarter: 2020Q2

REPORT INFORMATION
  Report Type: Report from Study
  Country: CA (occurrence: CA)
  Receive Date: 20200624
  Receipt Date: 20200624
  Transmission Date: 20200714
  Serious: Yes (Other)
  Sender: FDA-Public Use
  Company Number: CA-ACCORD-186520

PATIENT
  Age: 59 Year
  Sex: Female

DRUGS (7)
  1. MOMETASONE [Suspect]
     Active Substance: MOMETASONE
     Indication: ASTHMA
     Dosage: 2 EVERY 1 DAYS
     Route: 055
  2. MONTELUKAST [Suspect]
     Active Substance: MONTELUKAST SODIUM
     Indication: ASTHMA
     Dosage: 1 EVERY 1 DAYS
  3. SALBUTAMOL [Suspect]
     Active Substance: ALBUTEROL
     Indication: PRODUCT USED FOR UNKNOWN INDICATION
  4. NUCALA [Suspect]
     Active Substance: MEPOLIZUMAB
     Indication: ASTHMA
     Route: 042
  5. SINGULAIR [Suspect]
     Active Substance: MONTELUKAST SODIUM
     Indication: ASTHMA
  6. TIOTROPIUM [Suspect]
     Active Substance: TIOTROPIUM
     Indication: ASTHMA
     Dosage: 1 EVERY 1 DAYS
     Route: 055
  7. TIOTROPIUM/TIOTROPIUM BROMIDE [Suspect]
     Active Substance: TIOTROPIUM BROMIDE
     Indication: ASTHMA
     Dosage: 1 EVERY 1 DAYS

REACTIONS (6)
  - Dyspnoea exertional [Unknown]
  - Asthma [Unknown]
  - Therapeutic product effect incomplete [Unknown]
  - Dysgeusia [Unknown]
  - Dyspnoea [Unknown]
  - Dyspepsia [Unknown]
